FAERS Safety Report 16317728 (Version 1)
Quarter: 2019Q2

REPORT INFORMATION
  Report Type: Spontaneous
  Country: FR (occurrence: FR)
  Receive Date: 20190516
  Receipt Date: 20190516
  Transmission Date: 20190711
  Serious: Yes (Other)
  Sender: FDA-Public Use
  Company Number: FR-TEVA-2019-FR-1049381

PATIENT
  Age: 52 Year
  Sex: Female

DRUGS (3)
  1. FLUOROURACILE PFIZER 50 MG/ML, SOLUTION ? DILUER POUR PERFUSION [Suspect]
     Active Substance: FLUOROURACIL
     Indication: NEOPLASM MALIGNANT
     Route: 042
     Dates: start: 2018, end: 2018
  2. EPIRUBICINE TEVA [Suspect]
     Active Substance: EPIRUBICIN
     Indication: NEOPLASM MALIGNANT
     Route: 042
     Dates: start: 2018, end: 2018
  3. CYCLOPHOSPHAMIDE SANDOZ [Suspect]
     Active Substance: CYCLOPHOSPHAMIDE
     Indication: NEOPLASM MALIGNANT
     Route: 042
     Dates: start: 2018, end: 2018

REACTIONS (2)
  - Onychoclasis [Recovered/Resolved]
  - Nail ridging [Recovered/Resolved]

NARRATIVE: CASE EVENT DATE: 2018
